FAERS Safety Report 7538207-7 (Version None)
Quarter: 2011Q2

REPORT INFORMATION
  Report Type: 
  Country: None (occurrence: None)
  Receive Date: 20110609
  Receipt Date: 20031128
  Transmission Date: 20111010
  Serious: Yes (Other)
  Sender: FDA-Public Use
  Company Number: PHHO2003CA13780

PATIENT
  Sex: Female

DRUGS (2)
  1. CLOZARIL [Suspect]
     Indication: SCHIZOPHRENIA
     Dosage: NOT REPORTED
     Route: 048
     Dates: start: 20031006, end: 20031009
  2. CLOZAPINE [Concomitant]
     Dates: start: 20031010

REACTIONS (3)
  - EOSINOPHILIA [None]
  - COLITIS [None]
  - PYREXIA [None]
